FAERS Safety Report 8246639-7 (Version None)
Quarter: 2012Q1

REPORT INFORMATION
  Report Type: 
  Country: None (occurrence: None)
  Receive Date: 20120330
  Receipt Date: 20120326
  Transmission Date: 20120608
  Serious: Yes (Hospitalization, Other)
  Sender: FDA-Public Use
  Company Number: US-PFIZER INC-2012077592

PATIENT
  Sex: Female
  Weight: 72.109 kg

DRUGS (8)
  1. COREG [Concomitant]
     Dosage: UNK
  2. REVATIO [Suspect]
     Indication: PULMONARY HYPERTENSION
     Dosage: 20 MG, 3X/DAY
     Route: 048
     Dates: start: 20080101
  3. LIPITOR [Concomitant]
     Dosage: UNK
  4. ASPIRIN [Concomitant]
     Dosage: UNK
  5. PLAVIX [Concomitant]
     Dosage: UNK
  6. AMIODARONE [Concomitant]
     Dosage: UNK
  7. GLYBURIDE [Concomitant]
     Dosage: UNK
  8. ONGLYZA [Concomitant]
     Dosage: UNK

REACTIONS (2)
  - PNEUMONIA [None]
  - CARDIAC FAILURE CONGESTIVE [None]
